FAERS Safety Report 24171698 (Version 1)
Quarter: 2024Q3

REPORT INFORMATION
  Report Type: Spontaneous
  Country: US (occurrence: US)
  Receive Date: 20240805
  Receipt Date: 20240805
  Transmission Date: 20241016
  Serious: No
  Sender: BRISTOL MYERS SQUIBB
  Company Number: US-BRISTOL-MYERS SQUIBB COMPANY-2024-121843

PATIENT
  Age: 86 Year
  Sex: Male
  Weight: 66.22 kg

DRUGS (2)
  1. ONUREG [Suspect]
     Active Substance: AZACITIDINE
     Indication: Myelodysplastic syndrome with excess blasts
     Dosage: ONCE DAILY FOR 14 DAYS ON THEN 14 DAYS OFF
     Route: 048
     Dates: start: 202407
  2. VENCLEXTA [Concomitant]
     Active Substance: VENETOCLAX
     Indication: Myelodysplastic syndrome with excess blasts
     Dosage: ONCE DAILY DAYS 1-14
     Route: 048

REACTIONS (3)
  - Poor quality sleep [Recovered/Resolved]
  - Fatigue [Recovered/Resolved]
  - Off label use [Unknown]
